FAERS Safety Report 6074368-7 (Version None)
Quarter: 2009Q1

REPORT INFORMATION
  Report Type: 
  Country: None (occurrence: None)
  Receive Date: 20090211
  Receipt Date: 20090130
  Transmission Date: 20090719
  Serious: Yes (Other)
  Sender: FDA-Public Use
  Company Number: GB-PFIZER INC-2009163112

PATIENT

DRUGS (1)
  1. LINEZOLID [Suspect]
     Indication: STAPHYLOCOCCAL INFECTION
     Dosage: 8 MG/KG, HOURLY

REACTIONS (1)
  - VIIITH NERVE LESION [None]
